FAERS Safety Report 5869564-5 (Version None)
Quarter: 2008Q3

REPORT INFORMATION
  Report Type: 
  Country: None (occurrence: None)
  Receive Date: 20080904
  Receipt Date: 20080826
  Transmission Date: 20090109
  Serious: Yes (Hospitalization)
  Sender: FDA-Public Use
  Company Number: FR-WYE-G02056108

PATIENT
  Sex: Female

DRUGS (16)
  1. TAZOCILLINE [Suspect]
     Indication: ERYSIPELAS
     Dosage: UNKNOWN
     Route: 042
     Dates: start: 20080713, end: 20080721
  2. TAZOCILLINE [Suspect]
     Indication: HYPERTHERMIA
  3. DAFALGAN [Suspect]
     Dosage: ONE SINGLE DOSE
     Route: 048
     Dates: start: 20080721, end: 20080721
  4. LOVENOX [Concomitant]
     Dosage: UNKNOWN
     Route: 058
     Dates: start: 20080715, end: 20080724
  5. FORLAX [Concomitant]
     Dosage: UNKNOWN
     Route: 048
  6. ALDALIX [Concomitant]
     Dosage: UNKNOWN
     Route: 048
  7. MOPRAL [Concomitant]
     Dosage: UNKNOWN
  8. RAMIPRIL [Concomitant]
     Dosage: UNKNOWN
     Route: 048
  9. ZOCOR [Concomitant]
     Dosage: UNKNOWN
     Route: 048
  10. CHONDROSULF [Concomitant]
     Dosage: UNKNOWN
     Route: 048
  11. STABLON [Concomitant]
     Dosage: UNKNOWN
     Route: 048
  12. RIVOTRIL [Concomitant]
     Dosage: UNKNOWN
     Route: 048
  13. OROCAL [Concomitant]
     Dosage: UNKNOWN
     Route: 048
  14. ALPRAZOLAM [Concomitant]
     Dosage: UNKNOWN
  15. SKENAN [Concomitant]
     Dosage: UNKNOWN
     Route: 048
  16. PYOSTACINE [Suspect]
     Route: 048
     Dates: start: 20080721, end: 20080722

REACTIONS (3)
  - RASH MACULO-PAPULAR [None]
  - RASH PRURITIC [None]
  - RASH PUSTULAR [None]
